FAERS Safety Report 9075261 (Version 1)
Quarter: 2013Q1

REPORT INFORMATION
  Report Type: Report from Study
  Country: US (occurrence: US)
  Receive Date: 20130131
  Receipt Date: 20130131
  Transmission Date: 20140127
  Serious: No
  Sender: FDA-Public Use
  Company Number: US-ABBOTT-12P-163-1005896-00

PATIENT
  Age: 45 Year
  Sex: Female

DRUGS (10)
  1. HUMIRA [Suspect]
     Indication: RHEUMATOID ARTHRITIS
     Dates: start: 20121006
  2. NOVALOG INSULIN PUMP [Concomitant]
     Indication: DIABETES MELLITUS
  3. ASPIRIN [Concomitant]
     Indication: MYOCARDIAL INFARCTION
  4. TOPROL [Concomitant]
     Indication: CARDIAC DISORDER
     Dosage: DAILY
  5. LOTREL [Concomitant]
     Indication: CARDIAC DISORDER
     Dosage: 5/10MG DAILY
  6. CRESTOR [Concomitant]
     Indication: BLOOD CHOLESTEROL INCREASED
     Dosage: DAILY
  7. ZETIA [Concomitant]
     Indication: BLOOD CHOLESTEROL INCREASED
     Dosage: DAILY
  8. PROBIOTICS [Concomitant]
     Indication: PRODUCT USED FOR UNKNOWN INDICATION
     Dosage: TWICE DAILY
  9. TRAMADOL [Concomitant]
     Indication: ARTHRALGIA
  10. TYLENOL [Concomitant]
     Indication: PAIN

REACTIONS (1)
  - Upper respiratory tract infection [Recovering/Resolving]
